FAERS Safety Report 21032102 (Version 4)
Quarter: 2022Q4

REPORT INFORMATION
  Report Type: Report from Study
  Country: US (occurrence: US)
  Receive Date: 20220701
  Receipt Date: 20221114
  Transmission Date: 20230112
  Serious: Yes (Death, Hospitalization, Other)
  Sender: FDA-Public Use
  Company Number: US-BRISTOL-MYERS SQUIBB COMPANY-2022-065694

PATIENT
  Age: 74 Year
  Sex: Male
  Weight: 85 kg

DRUGS (4)
  1. IPILIMUMAB [Suspect]
     Active Substance: IPILIMUMAB
     Indication: Bladder transitional cell carcinoma
     Dosage: 1 MG/KG (DAY 1 OF CYCLE 1-4)
     Route: 065
     Dates: start: 20220401, end: 20220601
  2. NIVOLUMAB [Suspect]
     Active Substance: NIVOLUMAB
     Indication: Bladder transitional cell carcinoma
     Dosage: 3 MG/KG (DAY 1 OF CYCLES 1-4)
     Route: 065
     Dates: start: 20220401, end: 20220601
  3. CABOZANTINIB [Suspect]
     Active Substance: CABOZANTINIB
     Indication: Bladder transitional cell carcinoma
     Dosage: 0 MG
     Route: 048
     Dates: start: 20220401, end: 20220414
  4. CABOZANTINIB [Suspect]
     Active Substance: CABOZANTINIB
     Dosage: 0 MG
     Route: 048
     Dates: start: 20220512, end: 20220525

REACTIONS (3)
  - Sepsis [Fatal]
  - Fatigue [Recovering/Resolving]
  - Chronic kidney disease [Unknown]

NARRATIVE: CASE EVENT DATE: 20220527
